FAERS Safety Report 8019800-4 (Version None)
Quarter: 2012Q1

REPORT INFORMATION
  Report Type: 
  Country: None (occurrence: None)
  Receive Date: 20120103
  Receipt Date: 20111229
  Transmission Date: 20120608
  Serious: Yes (Other)
  Sender: FDA-Public Use
  Company Number: US-PFIZER INC-2011316879

PATIENT
  Sex: Male
  Weight: 96.145 kg

DRUGS (10)
  1. ZOLOFT [Suspect]
     Indication: APATHY
     Dosage: 100 MG, DAILY
  2. DILAUDID [Suspect]
     Indication: PAIN MANAGEMENT
     Dosage: UNK
  3. CLONAZEPAM [Concomitant]
     Dosage: 1 MG, 2X/DAY
  4. ZOLOFT [Suspect]
     Indication: DECREASED INTEREST
     Dosage: 50 MG, DAILY
  5. PERCOCET [Suspect]
     Indication: PAIN MANAGEMENT
     Dosage: UNK
     Route: 048
  6. TIZANIDINE [Concomitant]
     Indication: MUSCLE RELAXANT THERAPY
     Dosage: 4 MG, AS NEEDED
  7. GABAPENTIN [Concomitant]
     Dosage: 300 MG, 3X/DAY
  8. ZOLOFT [Suspect]
     Dosage: UNK
  9. CODEINE SULFATE [Suspect]
     Indication: PAIN MANAGEMENT
     Dosage: UNK
  10. METHADONE HCL [Suspect]
     Indication: PAIN MANAGEMENT
     Dosage: UNK

REACTIONS (7)
  - ABDOMINAL PAIN [None]
  - HEADACHE [None]
  - HERNIA [None]
  - BACK DISORDER [None]
  - HEPATIC STEATOSIS [None]
  - LUNG DISORDER [None]
  - CYST [None]
